FAERS Safety Report 17610551 (Version 2)
Quarter: 2020Q2

REPORT INFORMATION
  Report Type: Spontaneous
  Country: FR (occurrence: FR)
  Receive Date: 20200401
  Receipt Date: 20200521
  Transmission Date: 20200713
  Serious: Yes (Hospitalization, Other)
  Sender: FDA-Public Use
  Company Number: FR-PFIZER INC-2020132688

PATIENT
  Age: 55 Year
  Sex: Female
  Weight: 72 kg

DRUGS (12)
  1. FOLINIC ACID [Suspect]
     Active Substance: LEUCOVORIN
     Indication: PROPHYLAXIS
     Dosage: UNK
     Route: 041
     Dates: start: 20190710, end: 20190724
  2. TRAVOPROST. [Concomitant]
     Active Substance: TRAVOPROST
     Dosage: 1 DROP, 1X/DAY (1 GTT)
     Route: 047
  3. FLUOROURACIL. [Suspect]
     Active Substance: FLUOROURACIL
     Indication: OESOPHAGEAL ADENOCARCINOMA
     Dosage: UNK
     Route: 041
     Dates: start: 20190710, end: 20190724
  4. EMEND [Suspect]
     Active Substance: APREPITANT
     Indication: PROPHYLAXIS OF NAUSEA AND VOMITING
     Dosage: 125 MG, CYCLIC
     Route: 048
     Dates: start: 20190710, end: 20190724
  5. CORTANCYL [Suspect]
     Active Substance: PREDNISONE
     Dosage: 20 MG, CYCLIC
     Route: 048
     Dates: start: 20190710
  6. TEGRETOL [Suspect]
     Active Substance: CARBAMAZEPINE
     Dosage: 2 DF, 1X/DAY
     Route: 048
  7. OXALIPLATIN. [Suspect]
     Active Substance: OXALIPLATIN
     Indication: OESOPHAGEAL ADENOCARCINOMA
     Dosage: UNK
     Route: 041
     Dates: start: 20190710, end: 20190724
  8. AMLODIPINE BESILATE [Suspect]
     Active Substance: AMLODIPINE BESYLATE
     Dosage: 10 MG, 1X/DAY
     Route: 048
  9. SETOFILM [Suspect]
     Active Substance: ONDANSETRON
     Dosage: 8 MG, CYCLIC
     Route: 048
     Dates: start: 20190710
  10. TELMISARTAN. [Suspect]
     Active Substance: TELMISARTAN
     Dosage: 40 MG, 1X/DAY
     Route: 048
  11. LEVOTHYROX [Suspect]
     Active Substance: LEVOTHYROXINE
     Dosage: 150 UG, 1X/DAY
     Route: 048
  12. REFRESH [Concomitant]
     Active Substance: UNSPECIFIED INGREDIENT
     Dosage: 4 DROP, 1X/DAY (4 GTT)
     Route: 047

REACTIONS (1)
  - Subacute cutaneous lupus erythematosus [Recovering/Resolving]

NARRATIVE: CASE EVENT DATE: 20190720
